FAERS Safety Report 10839042 (Version 1)
Quarter: 2015Q1

REPORT INFORMATION
  Report Type: Spontaneous
  Country: US (occurrence: US)
  Receive Date: 20150220
  Receipt Date: 20150220
  Transmission Date: 20150721
  Serious: Yes (Hospitalization, Other)
  Sender: FDA-Public Use
  Company Number: US-SUN PHARMACEUTICAL INDUSTRIES LTD-2015SUN00440

PATIENT
  Age: 33 Year
  Sex: Female

DRUGS (3)
  1. ETHANOL [Concomitant]
     Active Substance: ALCOHOL
  2. BUPROPION HYDROCHLORIDE EXTENDED RELEASE SR [Suspect]
     Active Substance: BUPROPION HYDROCHLORIDE
     Indication: PRODUCT USED FOR UNKNOWN INDICATION
     Route: 065
  3. GABAPENTIN. [Concomitant]
     Active Substance: GABAPENTIN

REACTIONS (7)
  - Seizure [Recovering/Resolving]
  - Electrocardiogram QT prolonged [Recovering/Resolving]
  - Overdose [Recovering/Resolving]
  - Toxicity to various agents [Recovering/Resolving]
  - Mental status changes [Recovering/Resolving]
  - Acute lung injury [Recovering/Resolving]
  - Hypotension [Recovering/Resolving]
